FAERS Safety Report 4449129-2 (Version None)
Quarter: 2004Q3

REPORT INFORMATION
  Report Type: 
  Country: None (occurrence: None)
  Receive Date: 20040910
  Receipt Date: 20040830
  Transmission Date: 20050211
  Serious: No
  Sender: FDA-Public Use
  Company Number: 04H-082-0272110-00

PATIENT
  Age: 65 Year
  Sex: Male

DRUGS (2)
  1. DOBUTAMINE HCL [Suspect]
     Indication: STRESS ECHOCARDIOGRAM
     Dosage: SEE IMAGE
     Route: 042
  2. DIPYRIDAMOLE [Suspect]
     Indication: STRESS ECHOCARDIOGRAM
     Dosage: 0.28 MCG/KG, ONCE, INTRAVENOUS
     Route: 042

REACTIONS (5)
  - DIZZINESS [None]
  - DRUG INTERACTION [None]
  - HEART RATE DECREASED [None]
  - HYPOTENSION [None]
  - NAUSEA [None]
